FAERS Safety Report 9677847 (Version 1)
Quarter: 2013Q4

REPORT INFORMATION
  Report Type: Report from Study
  Country: US (occurrence: US)
  Receive Date: 20131108
  Receipt Date: 20131108
  Transmission Date: 20140711
  Serious: Yes (Hospitalization, Other)
  Sender: FDA-Public Use
  Company Number: US-ABBVIE-13P-163-1165003-00

PATIENT
  Sex: Female
  Weight: 113.5 kg

DRUGS (10)
  1. HUMIRA [Suspect]
     Indication: RHEUMATOID ARTHRITIS
     Route: 058
     Dates: start: 2010, end: 201202
  2. HUMIRA [Suspect]
     Route: 058
     Dates: start: 201204, end: 201302
  3. HUMIRA [Suspect]
     Route: 058
     Dates: start: 201305, end: 201307
  4. HUMIRA [Suspect]
     Route: 058
     Dates: start: 201308
  5. METHOTREXATE [Concomitant]
     Indication: RHEUMATOID ARTHRITIS
     Route: 048
  6. PRILOSEC [Concomitant]
     Indication: GASTROOESOPHAGEAL REFLUX DISEASE
     Route: 048
     Dates: start: 2010
  7. DIOVAN [Concomitant]
     Indication: HYPERTENSION
     Route: 048
     Dates: start: 2008
  8. TRAZODONE [Concomitant]
     Indication: FIBROMYALGIA
     Route: 048
  9. FLEXERIL [Concomitant]
     Indication: FIBROMYALGIA
     Route: 048
  10. TYLENOL [Concomitant]
     Indication: PAIN
     Route: 048

REACTIONS (13)
  - VIIth nerve paralysis [Recovering/Resolving]
  - Osteoarthritis [Recovered/Resolved]
  - Deafness [Recovering/Resolving]
  - Meniscus injury [Recovered/Resolved]
  - VIIth nerve paralysis [Recovering/Resolving]
  - Speech disorder [Recovering/Resolving]
  - Nausea [Recovering/Resolving]
  - Gastrooesophageal reflux disease [Recovering/Resolving]
  - Localised infection [Recovered/Resolved]
  - Staphylococcal infection [Recovered/Resolved]
  - Local swelling [Recovered/Resolved]
  - Pain in extremity [Recovered/Resolved]
  - Tinnitus [Recovered/Resolved]
